FAERS Safety Report 14665544 (Version 1)
Quarter: 2018Q1

REPORT INFORMATION
  Report Type: Spontaneous
  Country: GB (occurrence: GB)
  Receive Date: 20180321
  Receipt Date: 20180321
  Transmission Date: 20180509
  Serious: Yes (Other)
  Sender: FDA-Public Use
  Company Number: GB-TEVA-2018-GB-870534

PATIENT
  Age: 84 Year
  Sex: Female

DRUGS (8)
  1. LISINOPRIL. [Suspect]
     Active Substance: LISINOPRIL
     Route: 065
  2. CORACTEN [Suspect]
     Active Substance: NIFEDIPINE
  3. ACETYLSALICYLIC ACID [Suspect]
     Active Substance: ASPIRIN
     Route: 065
  4. ATENOLOL. [Suspect]
     Active Substance: ATENOLOL
     Route: 065
  5. PRAMIPEXOLE. [Suspect]
     Active Substance: PRAMIPEXOLE
     Route: 065
  6. CO-CARELDOPA [Suspect]
     Active Substance: CARBIDOPA\LEVODOPA
     Route: 065
  7. OMEPRAZOLE DELAYED RELEASE CAPSULES,10 MG, 20 MG AND 30 MG [Suspect]
     Active Substance: OMEPRAZOLE
     Route: 065
  8. MIRABEGRON [Suspect]
     Active Substance: MIRABEGRON

REACTIONS (6)
  - Accidental overdose [Unknown]
  - Tachycardia [Unknown]
  - Confusional state [Unknown]
  - Drug dispensed to wrong patient [Unknown]
  - Hyperventilation [Unknown]
  - Anxiety [Unknown]
